FAERS Safety Report 6375926-2 (Version None)
Quarter: 2009Q3

REPORT INFORMATION
  Report Type: 
  Country: None (occurrence: None)
  Receive Date: 20090917
  Receipt Date: 20090904
  Transmission Date: 20100115
  Serious: Yes (Other)
  Sender: FDA-Public Use
  Company Number: ADR17002009

PATIENT
  Age: 61 Year
  Sex: Female

DRUGS (10)
  1. CITALOPRAM HYDROBROMIDE [Suspect]
     Indication: ANXIETY
     Dosage: 10 MG, ORAL
     Route: 048
     Dates: start: 20060426, end: 20060516
  2. AMPICILLIN SODIUM [Concomitant]
  3. BECLOMETASONE ?G [Concomitant]
  4. CARBOCISTEINE 375 MG [Concomitant]
  5. IPRATROPIUM BROMIDE 20 ?G + 500 ?G [Concomitant]
  6. LANSOPRAZOLE 15 MG [Concomitant]
  7. PREDNISOLONE 40 MG [Concomitant]
  8. SALBUTAMOL 100 ?G + 5 MG [Concomitant]
  9. SEREVENT 25 ?G [Concomitant]
  10. SLO-PHYLLIN 250 MG [Concomitant]

REACTIONS (3)
  - BRONCHOSPASM [None]
  - ECZEMA [None]
  - URINARY RETENTION [None]
